FAERS Safety Report 9249307 (Version 4)
Quarter: 2013Q3

REPORT INFORMATION
  Report Type: Spontaneous
  Country: US (occurrence: US)
  Receive Date: 20130423
  Receipt Date: 20130808
  Transmission Date: 20140515
  Serious: Yes (Other)
  Sender: FDA-Public Use
  Company Number: US-UCBSA-083679

PATIENT
  Age: 65 Year
  Sex: Female
  Weight: 86.1 kg

DRUGS (22)
  1. LORTAB [Suspect]
     Indication: BACK PAIN
     Dosage: 5/500 MG; 1-2 TAB, SIX TO EIGHT HOURS AS REQUIRED
     Route: 048
     Dates: start: 20080721
  2. LORTAB [Suspect]
     Indication: FIBROMYALGIA
     Dosage: 5/500 MG; 1-2 TAB, SIX TO EIGHT HOURS AS REQUIRED
     Route: 048
     Dates: start: 20080721
  3. LORTAB [Suspect]
     Indication: BACK PAIN
     Dosage: 5/500 MG, TWICE DAILY AS REQUIRED
     Route: 048
  4. LORTAB [Suspect]
     Indication: FIBROMYALGIA
     Dosage: 5/500 MG, TWICE DAILY AS REQUIRED
     Route: 048
  5. LYRICA [Suspect]
     Indication: FIBROMYALGIA
     Route: 048
     Dates: start: 2008, end: 2010
  6. VERAPAMIL HCL [Suspect]
  7. CYMBALTA [Concomitant]
     Route: 048
     Dates: start: 20090508
  8. TRANXENE [Concomitant]
     Indication: TEMPOROMANDIBULAR JOINT SYNDROME
     Dosage: 1 TABLET AT NIGHT
     Route: 048
     Dates: start: 20081208
  9. LEVOTHYROXINE [Concomitant]
     Indication: HYPOTHYROIDISM
     Route: 048
     Dates: start: 20100810
  10. LEVOTHYROXINE [Concomitant]
     Indication: HYPOTHYROIDISM
     Route: 048
  11. CALTRATE + VITAMIN D [Concomitant]
     Indication: MINERAL SUPPLEMENTATION
     Dosage: 600 MG/400IU
     Dates: start: 20100708
  12. XANAX [Concomitant]
     Indication: ANXIETY
     Dosage: 0.25 MG, 1-2 TABLETS,
     Route: 048
     Dates: start: 20100427
  13. DITROPAN [Concomitant]
     Route: 048
     Dates: start: 20100201
  14. ZEGERID [Concomitant]
     Route: 048
     Dates: start: 20080721
  15. ZYRTEC [Concomitant]
     Route: 048
     Dates: start: 20080417
  16. FLONASE [Concomitant]
     Dosage: EACH NOSTRIL 2 SPRAYS Q DAILY
     Route: 045
     Dates: start: 20071207
  17. LIPITOR [Concomitant]
     Route: 048
     Dates: start: 20070727
  18. OMEGA 3 [Concomitant]
     Indication: BLOOD CHOLESTEROL
     Dosage: PILL
     Route: 048
     Dates: start: 20060918
  19. MULTIVITAMIN [Concomitant]
     Route: 048
     Dates: start: 20031110
  20. VASERETIC [Concomitant]
     Dosage: 10/25 MG
     Route: 048
     Dates: start: 20031110
  21. SHINGLES VACCINE [Concomitant]
     Dates: start: 20100201
  22. PNEUMO VACCINE [Concomitant]
     Dates: start: 20081208, end: 20081208

REACTIONS (17)
  - Cerebrovascular accident [Recovered/Resolved with Sequelae]
  - Dry eye [Recovered/Resolved]
  - Carotid artery stenosis [Recovered/Resolved]
  - Herpes zoster [Recovered/Resolved]
  - Major depression [Recovered/Resolved]
  - Drug dependence [Recovered/Resolved]
  - Eye pain [Recovered/Resolved]
  - Exophthalmos [Recovered/Resolved]
  - Haematochezia [Recovered/Resolved]
  - Nail discolouration [Recovered/Resolved]
  - Musculoskeletal pain [Recovered/Resolved]
  - Fall [Unknown]
  - Rotator cuff syndrome [Recovered/Resolved]
  - Metabolic syndrome [Unknown]
  - Drug ineffective [Unknown]
  - Bradycardia [Unknown]
  - Visual impairment [Unknown]
